FAERS Safety Report 24883882 (Version 1)
Quarter: 2025Q1

REPORT INFORMATION
  Report Type: Report from Study
  Country: PH (occurrence: PH)
  Receive Date: 20250124
  Receipt Date: 20250124
  Transmission Date: 20250409
  Serious: Yes (Other)
  Sender: OTSUKA
  Company Number: PH-OTSUKA-2024_020300

PATIENT
  Age: 79 Year
  Sex: Male

DRUGS (1)
  1. TOLVAPTAN [Suspect]
     Active Substance: TOLVAPTAN
     Indication: Oedema
     Dosage: 0.25 DF, QOD (15 MG 1/4 TABLET EVERY MWFSUN)
     Route: 048
     Dates: start: 202211, end: 202407

REACTIONS (4)
  - Nephrolithiasis [Unknown]
  - Inappropriate schedule of product administration [Unknown]
  - Underdose [Unknown]
  - Wrong technique in product usage process [Unknown]

NARRATIVE: CASE EVENT DATE: 20241001
